FAERS Safety Report 19443617 (Version 1)
Quarter: 2021Q2

REPORT INFORMATION
  Report Type: Spontaneous
  Country: IR (occurrence: IR)
  Receive Date: 20210621
  Receipt Date: 20210621
  Transmission Date: 20210717
  Serious: Yes (Hospitalization, Other)
  Sender: FDA-Public Use
  Company Number: IR-AMNEAL PHARMACEUTICALS-2021-AMRX-02186

PATIENT
  Age: 21 Year
  Sex: Male

DRUGS (1)
  1. ALBENZA [Suspect]
     Active Substance: ALBENDAZOLE
     Indication: ECHINOCOCCIASIS
     Dosage: 800 MILLIGRAM, DAILY
     Route: 065

REACTIONS (18)
  - Sepsis [Recovered/Resolved]
  - Pancreatitis [Recovered/Resolved]
  - Decreased appetite [Recovered/Resolved]
  - Aspartate aminotransferase increased [Recovered/Resolved]
  - Abdominal pain upper [Recovered/Resolved]
  - Hepatic cyst ruptured [Recovered/Resolved]
  - Cholangitis [Recovered/Resolved]
  - Hepatitis [Recovered/Resolved]
  - Fatigue [Recovered/Resolved]
  - Alanine aminotransferase increased [Recovered/Resolved]
  - Jaundice [Recovered/Resolved]
  - Vomiting [Recovered/Resolved]
  - Peritonitis [Recovered/Resolved]
  - Biliary obstruction [Recovered/Resolved]
  - Toxicity to various agents [Recovered/Resolved]
  - Illness [Recovered/Resolved]
  - Abdominal tenderness [Recovered/Resolved]
  - Pyrexia [Recovered/Resolved]
